FAERS Safety Report 12856994 (Version 2)
Quarter: 2016Q4

REPORT INFORMATION
  Report Type: Spontaneous
  Country: US (occurrence: US)
  Receive Date: 20161018
  Receipt Date: 20161102
  Transmission Date: 20170207
  Serious: No
  Sender: FDA-Public Use
  Company Number: US-PFIZER INC-2016484614

PATIENT
  Age: 54 Year
  Sex: Male
  Weight: 75 kg

DRUGS (38)
  1. LYRICA [Suspect]
     Active Substance: PREGABALIN
     Dosage: 150 MG, 2X/DAY, IN MORNING AND EVENING
     Route: 048
  2. CALCIUM + VIT D [Concomitant]
     Active Substance: CALCIUM\VITAMIN D
     Indication: OSTEOPOROSIS
     Dosage: 250 MG, 1X/DAY
     Dates: start: 2013
  3. RESTASIS [Concomitant]
     Active Substance: CYCLOSPORINE
     Dosage: UNK
     Dates: start: 20150911
  4. VIAGRA [Concomitant]
     Active Substance: SILDENAFIL CITRATE
     Indication: ERECTILE DYSFUNCTION
     Dosage: 100 MG, AS NEEDED
     Route: 048
  5. TOFRANIL [Concomitant]
     Active Substance: IMIPRAMINE HYDROCHLORIDE
     Dosage: 25 MG, UNK
     Dates: start: 20151215
  6. LYRICA [Suspect]
     Active Substance: PREGABALIN
     Indication: DIABETIC NEUROPATHY
     Dosage: 75 MG, UNK
     Route: 048
  7. LYRICA [Suspect]
     Active Substance: PREGABALIN
     Indication: TYPE 2 DIABETES MELLITUS
     Dosage: 100 MG, UNK
     Route: 048
  8. LYRICA [Suspect]
     Active Substance: PREGABALIN
     Dosage: 150 MG, 2X/DAY
     Route: 048
     Dates: start: 20151228
  9. POTASSIUM MAGNESIUM CITRATE [Concomitant]
     Indication: SUPPLEMENTATION THERAPY
     Dosage: 70 MG, 2X/DAY
     Dates: start: 2013
  10. ULTRAM [Concomitant]
     Active Substance: TRAMADOL HYDROCHLORIDE
     Dosage: UNK
     Dates: start: 20150825
  11. LOSARTAN/HCTZ [Concomitant]
     Active Substance: HYDROCHLOROTHIAZIDE\LOSARTAN
     Indication: HYPERTENSION
     Dosage: 50/12.5MG ONE TABLET DAILY
  12. POTASSIUM CITRATE. [Concomitant]
     Active Substance: POTASSIUM CITRATE
     Indication: BLOOD POTASSIUM ABNORMAL
     Dosage: 200 MG, 2X/DAY
     Dates: start: 2013
  13. FLUOCINONIDE. [Concomitant]
     Active Substance: FLUOCINONIDE
     Indication: SKIN EXFOLIATION
     Dosage: 0.05 %, 2X/DAY, ON HEAD IN MORNING AND NIGHT
     Route: 061
  14. LYRICA [Suspect]
     Active Substance: PREGABALIN
     Indication: NEUROPATHY PERIPHERAL
     Dosage: 50 MG, UNK
     Route: 048
  15. FERROUS SULFATE. [Concomitant]
     Active Substance: FERROUS SULFATE
     Indication: BLOOD COUNT ABNORMAL
     Dosage: 325 MG, DAILY
     Dates: start: 20161004
  16. RESTASIS [Concomitant]
     Active Substance: CYCLOSPORINE
     Indication: DRY EYE
     Dosage: 0.5 ML, 2X/DAY, EACH EYE MORNING AND EVENING
     Route: 047
  17. VIAGRA [Concomitant]
     Active Substance: SILDENAFIL CITRATE
     Dosage: 100 MG, AS NEEDED, (TAKE 1 TAB BY MOUTH EVERY DAY AS NEEDED FOR OTHER.PRIOR TO SEXUAL ACTIVITY-ORAL)
     Route: 048
     Dates: start: 20160112
  18. LEXAPRO [Concomitant]
     Active Substance: ESCITALOPRAM OXALATE
     Dosage: 10 MG, UNK
     Dates: start: 20160321
  19. HYZAAR [Concomitant]
     Active Substance: HYDROCHLOROTHIAZIDE\LOSARTAN POTASSIUM
     Dosage: 1 DF, DAILY 1 DF, DAILY [LOSARTAN: 50MG/ HYDROCHLOROTHIAZIDE: 12.5 MG]
     Route: 048
     Dates: start: 20160627
  20. GLUCOPHAGE [Concomitant]
     Active Substance: METFORMIN HYDROCHLORIDE
     Dosage: 1000 MG, 2X/DAY (TABLET TAKE 2 TABS BY MOUTH WITH BREAKFAST AND SUPPER-ORAL)
     Route: 048
     Dates: start: 20160329
  21. FLOMAX [Concomitant]
     Active Substance: TAMSULOSIN HYDROCHLORIDE
     Dosage: UNK
     Dates: start: 20150809
  22. LYRICA [Suspect]
     Active Substance: PREGABALIN
     Dosage: 150 MG, 2X/DAY
     Route: 048
     Dates: start: 20161024
  23. LATANOPROST. [Concomitant]
     Active Substance: LATANOPROST
     Indication: GLAUCOMA
     Dosage: 125MCG/2.5ML 0.005 ONE DROP IN BOTH EYES AT BEDTIME
     Route: 047
     Dates: start: 2015
  24. CLOBETASOL PROPIONATE. [Concomitant]
     Active Substance: CLOBETASOL PROPIONATE
     Indication: NAIL DISORDER
     Dosage: 60MG 0.05 %, DAILY, AS NEEDED
     Dates: start: 201604
  25. XALATAN [Concomitant]
     Active Substance: LATANOPROST
     Dosage: UNK
     Dates: start: 20150914
  26. BUSPIRONE [Concomitant]
     Active Substance: BUSPIRONE HYDROCHLORIDE
     Indication: MAJOR DEPRESSION
     Dosage: 5 MG, 3X/DAY
  27. ESCITALOPRAM [Concomitant]
     Active Substance: ESCITALOPRAM OXALATE
     Indication: DEPRESSION
     Dosage: 10 MG, 1X/DAY
     Dates: start: 201606
  28. VITAMIN A [Concomitant]
     Active Substance: VITAMIN A
     Dosage: 1000 IU, DAILY
     Dates: start: 2013
  29. RESTASIS [Concomitant]
     Active Substance: CYCLOSPORINE
     Dosage: UNK
     Route: 047
     Dates: start: 20150911
  30. METFORMIN [Concomitant]
     Active Substance: METFORMIN HYDROCHLORIDE
     Indication: DIABETES MELLITUS
     Dosage: TWO 500MG TWICE IN MORNING AND 500MG AT NIGHT
     Dates: start: 1996
  31. SIMVASTATIN. [Concomitant]
     Active Substance: SIMVASTATIN
     Indication: CARDIAC DISORDER
     Dosage: 40 MG, DAILY
  32. ASPIRIN. [Concomitant]
     Active Substance: ASPIRIN
     Indication: CARDIAC DISORDER
     Dosage: 81 MG, 1X/DAY
     Dates: start: 1999
  33. KETONAZOLE [Concomitant]
     Dosage: APPLY THREE TIMES A WEEK. IF WORSE DO FIVE TIMES A WEEK
     Route: 061
  34. LIDEX [Concomitant]
     Active Substance: FLUOCINONIDE
     Dosage: UNK
     Dates: start: 20151114
  35. HUMALOG MIX [Concomitant]
     Active Substance: INSULIN LISPRO
     Dosage: 30 IU, UNK (15 UNITS BEFORE BREAKFAST AND 15 UNITS BEFORE SUPPER)
     Dates: start: 20160329
  36. ZOCOR [Concomitant]
     Active Substance: SIMVASTATIN
     Dosage: 40 MG, DAILY
     Route: 048
     Dates: start: 20160627
  37. WELLBUTRIN SR [Concomitant]
     Active Substance: BUPROPION HYDROCHLORIDE
     Dosage: 100 MG, UNK
     Dates: start: 20151117
  38. VITAMIN D3 [Concomitant]
     Active Substance: CHOLECALCIFEROL
     Dosage: 1 DF, UNK (EVERY MONDAY AND FRIDAY)
     Route: 048
     Dates: start: 20150619

REACTIONS (6)
  - Crying [Unknown]
  - Muscle tightness [Recovering/Resolving]
  - Muscle spasms [Recovering/Resolving]
  - Gait disturbance [Unknown]
  - Insomnia [Unknown]
  - Activities of daily living impaired [Unknown]

NARRATIVE: CASE EVENT DATE: 20161011
